FAERS Safety Report 5692565-7 (Version None)
Quarter: 2008Q2

REPORT INFORMATION
  Report Type: 
  Country: None (occurrence: None)
  Receive Date: 20080401
  Receipt Date: 20080321
  Transmission Date: 20081010
  Serious: No
  Sender: FDA-Public Use
  Company Number: TPA2008A00372

PATIENT
  Age: 65 Year
  Sex: Male
  Weight: 99.7913 kg

DRUGS (7)
  1. ACTOPLUS MET [Suspect]
     Indication: TYPE 2 DIABETES MELLITUS
     Dosage: 15 MG/850 MG, 1 IN 1 D, PER ORAL; 15 MG/850 MG, 2 IN 1 D, PER ORAL
     Route: 048
     Dates: end: 20080101
  2. ACTOPLUS MET [Suspect]
     Indication: TYPE 2 DIABETES MELLITUS
     Dosage: 15 MG/850 MG, 1 IN 1 D, PER ORAL; 15 MG/850 MG, 2 IN 1 D, PER ORAL
     Route: 048
     Dates: start: 20080101
  3. ACTOS [Suspect]
     Indication: TYPE 2 DIABETES MELLITUS
     Dosage: 1 IN 1 D, PER ORAL
     Route: 048
  4. TAZTIA XT (ANTIHYPERENSIVES) [Concomitant]
  5. AVALIDE [Concomitant]
  6. METFORMIN XR (ANTI-DIABETICS) [Concomitant]
  7. TAZTIA (ANTIHYPERTENSIVES) [Concomitant]

REACTIONS (5)
  - ARTHRALGIA [None]
  - BLOOD GLUCOSE INCREASED [None]
  - GLYCOSYLATED HAEMOGLOBIN INCREASED [None]
  - MENISCUS LESION [None]
  - PRECANCEROUS SKIN LESION [None]
